FAERS Safety Report 9310567 (Version 4)
Quarter: 2013Q4

REPORT INFORMATION
  Report Type: Spontaneous
  Country: JP (occurrence: JP)
  Receive Date: 20130527
  Receipt Date: 20131210
  Transmission Date: 20140711
  Serious: Yes (Hospitalization)
  Sender: FDA-Public Use
  Company Number: JP-AMGEN-JPNSP2013037130

PATIENT
  Age: 61 Year
  Sex: Female
  Weight: 52 kg

DRUGS (11)
  1. MIMPARA [Suspect]
     Indication: HYPERPARATHYROIDISM SECONDARY
     Dosage: 75 MG, QD
     Route: 048
     Dates: start: 20100527, end: 20130424
  2. ARANESP [Concomitant]
     Indication: NEPHROGENIC ANAEMIA
     Dosage: 60 MUG, 1X/WEEK
     Route: 040
  3. MARILEON N [Concomitant]
     Indication: CEREBROVASCULAR DISORDER
     Dosage: 5 MG, TID
     Route: 048
  4. ZYLORIC [Concomitant]
     Indication: HYPERURICAEMIA
     Dosage: 100 MG, BID
     Route: 048
  5. ADALAT CR [Concomitant]
     Indication: HYPERTENSION
     Dosage: 20 MG, TID
     Route: 048
  6. CARDENALIN [Concomitant]
     Indication: HYPERTENSION
     Dosage: 2 MG, QD
     Route: 048
  7. AMLODIN [Concomitant]
     Indication: HYPERTENSION
     Dosage: 5 MG, QD
     Route: 048
  8. AZILVA [Concomitant]
     Indication: HYPERTENSION
     Dosage: 20 MG, BID
     Route: 048
     Dates: start: 20130424
  9. SHAKUYAKUKANZOTO [Concomitant]
     Indication: HYPOAESTHESIA
     Dosage: 2.5 G, BID
     Route: 048
  10. SORBITOL [Concomitant]
     Indication: CONSTIPATION
     Dosage: 8 G, TID
     Route: 048
  11. SENNARIDE [Concomitant]
     Indication: CONSTIPATION
     Dosage: 12 MG, QD
     Route: 048

REACTIONS (1)
  - Hypoglycaemia [Recovering/Resolving]
